FAERS Safety Report 20749578 (Version 3)
Quarter: 2022Q2

REPORT INFORMATION
  Report Type: Report from Study
  Country: CO (occurrence: CO)
  Receive Date: 20220426
  Receipt Date: 20220610
  Transmission Date: 20220721
  Serious: Yes (Other)
  Sender: FDA-Public Use
  Company Number: CO-JNJFOC-20220443852

PATIENT
  Age: 58 Year
  Sex: Female
  Weight: 64 kg

DRUGS (10)
  1. SIMPONI [Suspect]
     Active Substance: GOLIMUMAB
     Indication: Rheumatoid arthritis
     Route: 058
     Dates: start: 2018, end: 20220410
  2. PREDNISOLONE [Concomitant]
     Active Substance: PREDNISOLONE
  3. ACETAMINOPHEN\HYDROCODONE [Concomitant]
     Active Substance: ACETAMINOPHEN\HYDROCODONE
  4. PREGABALIN [Concomitant]
     Active Substance: PREGABALIN
  5. LOSARTAN [Concomitant]
     Active Substance: LOSARTAN
  6. METOPROLOL [Concomitant]
     Active Substance: METOPROLOL
  7. INFLAXEN [Concomitant]
  8. BIOCALCIUM [CALCIUM] [Concomitant]
  9. ASPIRIN [Concomitant]
     Active Substance: ASPIRIN
  10. COVID-19 VACCINE [Concomitant]
     Indication: COVID-19 prophylaxis
     Dosage: 2 ND DOSE
     Dates: start: 20210805

REACTIONS (1)
  - Hepatitis B [Not Recovered/Not Resolved]

NARRATIVE: CASE EVENT DATE: 20220418
